FAERS Safety Report 8469438 (Version 3)
Quarter: 2013Q1

REPORT INFORMATION
  Report Type: Spontaneous
  Country: US (occurrence: US)
  Receive Date: 20120321
  Receipt Date: 20130122
  Transmission Date: 20140127
  Serious: Yes (Hospitalization)
  Sender: FDA-Public Use
  Company Number: US-BAYER-2012-025710

PATIENT
  Age: 27 Year
  Sex: Female
  Weight: 83.9 kg

DRUGS (18)
  1. YASMIN [Suspect]
     Indication: CONTRACEPTION
     Dosage: UNK
     Dates: start: 200710, end: 200808
  2. YASMIN [Suspect]
     Indication: CONTRACEPTION
     Dosage: UNK
     Dates: start: 200710, end: 200808
  3. OCELLA [Suspect]
     Indication: CONTRACEPTION
     Dosage: UNK
     Dates: start: 200808, end: 200905
  4. OCELLA [Suspect]
     Indication: CONTRACEPTION
     Dosage: UNK
     Dates: start: 200808, end: 200905
  5. VALERIAN ROOT [Concomitant]
  6. SKULLCAP [Concomitant]
  7. KAVA [Concomitant]
  8. PERCOCET [Concomitant]
     Indication: PAIN
     Dosage: UNK
     Dates: start: 20090531
  9. PHENERGAN [Concomitant]
     Indication: NAUSEA
     Dosage: 12.5 MG, UNK
     Route: 054
     Dates: start: 20090531
  10. OXYCODONE [Concomitant]
  11. ATIVAN [Concomitant]
  12. EXCEDRIN MIGRAINE [Concomitant]
     Dosage: EVERY DAY
  13. VITCOFOL [Concomitant]
     Dosage: EVERY DAY
  14. IBUPROFEN [Concomitant]
     Dosage: UNK
     Dates: start: 1995, end: 200906
  15. POTASSIUM [Concomitant]
     Indication: VITAMIN SUPPLEMENTATION
     Dosage: UNK
     Dates: start: 1995, end: 200906
  16. SOUTH PACIFIC ELIXIR TINCTURE [Concomitant]
     Dosage: UNK
     Dates: start: 20090520, end: 20090529
  17. VALERIAN [Concomitant]
     Dosage: WEEKLY
     Dates: start: 2009
  18. EMERGEN-C [Concomitant]
     Dosage: DAILY
     Dates: start: 2009

REACTIONS (11)
  - Pulmonary embolism [None]
  - Nephrolithiasis [None]
  - Injury [None]
  - Haemoptysis [None]
  - Pain [None]
  - Emotional distress [None]
  - Anxiety [None]
  - General physical health deterioration [None]
  - Pain [None]
  - Abdominal pain [None]
  - Mental disorder [None]
